FAERS Safety Report 18349413 (Version 1)
Quarter: 2020Q4

REPORT INFORMATION
  Report Type: Spontaneous
  Country: AU (occurrence: AU)
  Receive Date: 20201006
  Receipt Date: 20201006
  Transmission Date: 20210114
  Serious: Yes (Hospitalization, Other)
  Sender: FDA-Public Use
  Company Number: AU-PFIZER INC-2020374693

PATIENT
  Age: 33 Year
  Sex: Male

DRUGS (5)
  1. MEPERIDINE HCL [Suspect]
     Active Substance: MEPERIDINE HYDROCHLORIDE
     Dosage: 200 MG (DURING THE FOLLOWING EIGHT HOURS)
     Dates: start: 1988
  2. MEPERIDINE HCL [Suspect]
     Active Substance: MEPERIDINE HYDROCHLORIDE
     Indication: RENAL FAILURE
     Dosage: 300 MG (OVER EIGHT HOURS)
     Dates: start: 1988
  3. MORPHINE [Concomitant]
     Active Substance: MORPHINE
     Indication: RENAL COLIC
     Dosage: UNK (TOTAL DOSE: 60 MG)
     Dates: start: 1988
  4. MEPERIDINE HCL [Suspect]
     Active Substance: MEPERIDINE HYDROCHLORIDE
     Indication: RENAL COLIC
     Dosage: 100 MG
     Dates: start: 1988
  5. PROCHLORPERAZINE. [Concomitant]
     Active Substance: PROCHLORPERAZINE
     Indication: RENAL COLIC
     Dosage: UNK (TOTAL DOSE: 62.5 MG)
     Dates: start: 1988

REACTIONS (7)
  - Product use in unapproved indication [Unknown]
  - Confusional state [Unknown]
  - Agitation [Unknown]
  - Hyperkalaemia [Recovered/Resolved]
  - Off label use [Unknown]
  - Myoclonus [Recovered/Resolved]
  - Disorientation [Unknown]

NARRATIVE: CASE EVENT DATE: 1988
